FAERS Safety Report 9943068 (Version 1)
Quarter: 2014Q1

REPORT INFORMATION
  Report Type: Spontaneous
  Country: US (occurrence: US)
  Receive Date: 20140303
  Receipt Date: 20140303
  Transmission Date: 20141002
  Serious: No
  Sender: FDA-Public Use
  Company Number: US-PFIZER INC-2014059760

PATIENT
  Sex: Female

DRUGS (9)
  1. DILANTIN-125 [Suspect]
     Dosage: UNK
  2. NEOSPORIN [Suspect]
     Dosage: UNK
  3. CYMBALTA [Suspect]
     Dosage: UNK
  4. KLONOPIN [Suspect]
     Dosage: UNK
  5. PREDNISONE [Suspect]
     Dosage: UNK
  6. PROPULSID [Suspect]
     Dosage: UNK
  7. TEGRETOL [Suspect]
     Dosage: UNK
  8. ZANAFLEX [Suspect]
     Dosage: UNK
  9. PENICILLIN G [Suspect]

REACTIONS (1)
  - Drug hypersensitivity [Unknown]
